FAERS Safety Report 23669581 (Version 1)
Quarter: 2024Q1

REPORT INFORMATION
  Report Type: Spontaneous
  Country: US (occurrence: None)
  Receive Date: 20240324
  Receipt Date: 20240324
  Transmission Date: 20240410
  Serious: Yes (Death, Hospitalization)
  Sender: FDA-Public Use
  Company Number: None

PATIENT
  Age: 91 Year
  Sex: Female
  Weight: 40.9 kg

DRUGS (2)
  1. EFGARTIGIMOD ALFA [Suspect]
     Active Substance: EFGARTIGIMOD ALFA
     Indication: Myasthenia gravis
     Dosage: 395 MG ONCE WEEKLY INTRAVENOUS?
     Route: 042
     Dates: start: 20240105, end: 20240122
  2. PREDNISONE [Concomitant]
     Active Substance: PREDNISONE
     Dates: start: 20231222, end: 20240202

REACTIONS (6)
  - Urinary tract infection [None]
  - Therapy non-responder [None]
  - Pneumonia [None]
  - Hypotension [None]
  - Cognitive disorder [None]
  - Gait disturbance [None]

NARRATIVE: CASE EVENT DATE: 20240222
